FAERS Safety Report 8163970 (Version 3)
Quarter: 2012Q4

REPORT INFORMATION
  Report Type: 
  Country: US (occurrence: US)
  Receive Date: 20110930
  Receipt Date: 20121012
  Transmission Date: 20130627
  Serious: Yes (Other)
  Sender: FDA-Public Use
  Company Number: US-ASTRAZENECA-2011SE11587

PATIENT
  Age: 67 Year
  Sex: Female

DRUGS (5)
  1. ARIMIDEX [Suspect]
     Indication: BREAST CANCER FEMALE
     Route: 048
  2. SYMBICORT PMDI [Suspect]
     Indication: SARCOIDOSIS
     Dosage: UNKNOWN
     Route: 055
  3. PULMICORT FLEXHALER [Suspect]
     Indication: SARCOIDOSIS
     Route: 055
  4. NEXIUM [Suspect]
     Indication: GASTROOESOPHAGEAL REFLUX DISEASE
     Route: 048
  5. CRESTOR [Suspect]
     Indication: BLOOD CHOLESTEROL INCREASED
     Route: 048

REACTIONS (5)
  - Catheterisation cardiac abnormal [Unknown]
  - Breast cancer female [Unknown]
  - Laryngitis [Unknown]
  - Sarcoidosis [Unknown]
  - Epigastric discomfort [Unknown]
